FAERS Safety Report 7973254-2 (Version None)
Quarter: 2011Q4

REPORT INFORMATION
  Report Type: 
  Country: None (occurrence: None)
  Receive Date: 20111213
  Receipt Date: 20111202
  Transmission Date: 20120403
  Serious: Yes (Hospitalization, Disabling, Other)
  Sender: FDA-Public Use
  Company Number: PHEH2009US04653

PATIENT
  Sex: Female

DRUGS (25)
  1. HUMALOG [Concomitant]
  2. LEVAQUIN [Concomitant]
     Dosage: 500 MG ONE DAILY
  3. GLUCOPHAGE [Concomitant]
     Indication: DIABETES MELLITUS
  4. ACETAMINOPHEN [Concomitant]
  5. NOVOLOG [Concomitant]
     Dosage: 25 U, TID
  6. SYNTHROID [Concomitant]
     Route: 048
  7. PROAIR HFA (ALBUTEROL SULFATE) INHALATION AEROSOL [Concomitant]
     Dosage: 90 MCG
  8. PERCOCET [Concomitant]
     Dosage: 5 MG, UNK
  9. LASIX [Concomitant]
  10. MAGNESIUM OXIDE [Concomitant]
     Dosage: 400 MG, BID
     Route: 048
  11. COLCHICINE [Concomitant]
     Dosage: 0.6 MG,
     Route: 048
  12. ATENOLOL [Concomitant]
     Indication: HYPERTENSION
  13. XELODA [Concomitant]
  14. ZOCOR [Concomitant]
  15. ALLOPURINOL [Concomitant]
     Dosage: 100 MG, QOD
     Route: 048
  16. ZOLOFT [Concomitant]
     Dosage: 50 MG, QD
     Route: 048
  17. AMOXICILLIN [Concomitant]
     Dosage: 500 MG, UNK
  18. ALPRAZOLAM [Concomitant]
     Dosage: 0.25 MG, PRN
  19. AREDIA [Suspect]
     Dates: start: 20021201, end: 20080501
  20. HEPARIN [Concomitant]
  21. INSULIN [Concomitant]
     Indication: DIABETES MELLITUS
  22. FASLODEX [Concomitant]
  23. BENICAR [Concomitant]
     Route: 048
  24. LIPITOR [Concomitant]
     Dosage: 10 MG, QD
     Route: 048
  25. TRICOR [Concomitant]
     Dosage: 145 MG, QD
     Route: 048

REACTIONS (41)
  - TOOTH LOSS [None]
  - CHOLELITHIASIS [None]
  - METASTASES TO BONE [None]
  - UPPER RESPIRATORY TRACT INFECTION [None]
  - OBESITY [None]
  - METASTASES TO LUNG [None]
  - METASTASES TO SKIN [None]
  - VOMITING [None]
  - NAUSEA [None]
  - RASH [None]
  - HYPOCALCAEMIA [None]
  - DYSPNOEA [None]
  - HYPOKALAEMIA [None]
  - HEPATIC STEATOSIS [None]
  - FATIGUE [None]
  - HYPOGLYCAEMIA [None]
  - GOUT [None]
  - OSTEOMYELITIS [None]
  - OSTEONECROSIS OF JAW [None]
  - HYPOAESTHESIA [None]
  - EXPOSED BONE IN JAW [None]
  - DRUG HYPERSENSITIVITY [None]
  - CHRONIC SINUSITIS [None]
  - HYPOTHYROIDISM [None]
  - ASTHMA [None]
  - PAIN [None]
  - ANXIETY [None]
  - PURULENT DISCHARGE [None]
  - HYPOMAGNESAEMIA [None]
  - WEIGHT DECREASED [None]
  - PYREXIA [None]
  - JAW FRACTURE [None]
  - INJURY [None]
  - PHYSICAL DISABILITY [None]
  - ASCITES [None]
  - DEHYDRATION [None]
  - OEDEMA PERIPHERAL [None]
  - HYPERCHOLESTEROLAEMIA [None]
  - DIABETIC KETOACIDOSIS [None]
  - CARDIOMEGALY [None]
  - BONE PAIN [None]
